FAERS Safety Report 13955986 (Version 2)
Quarter: 2017Q4

REPORT INFORMATION
  Report Type: Spontaneous
  Country: US (occurrence: US)
  Receive Date: 20170911
  Receipt Date: 20171117
  Transmission Date: 20180320
  Serious: Yes (Hospitalization, Other)
  Sender: FDA-Public Use
  Company Number: US-SAOL THERAPEUTICS-2017SAO01428

PATIENT
  Age: 69 Year
  Sex: Male

DRUGS (22)
  1. BACLOFEN. [Suspect]
     Active Substance: BACLOFEN
     Indication: MUSCLE SPASTICITY
     Dosage: 1273 ?G, \DAY
     Route: 037
  2. LIDOCAINE 2% MUCOUS MEMBRANE JELLY IN APPLICATOR [Concomitant]
  3. MIRALAX [Concomitant]
     Active Substance: POLYETHYLENE GLYCOL 3350
     Dosage: 1 DOSAGE UNITS, AS NEEDED
     Route: 048
  4. TYLENOL [Concomitant]
     Active Substance: ACETAMINOPHEN
     Dosage: 2 TABLETS, 4X/DAY
     Route: 048
  5. EMLA [Concomitant]
     Active Substance: LIDOCAINE\PRILOCAINE
     Route: 061
  6. MYSOLINE [Concomitant]
     Active Substance: PRIMIDONE
     Dosage: 1 TABLETS, 1X/DAY
     Route: 048
  7. PRILOSEC [Concomitant]
     Active Substance: OMEPRAZOLE MAGNESIUM
     Dosage: 1 CAPSULES, 1X/DAY
     Route: 048
  8. TENORMIN [Concomitant]
     Active Substance: ATENOLOL
     Dosage: 1 TABLETS, 1X/DAY
     Route: 048
  9. MORPHINE [Suspect]
     Active Substance: MORPHINE
     Dosage: .09548 MG, \DAY
     Route: 037
  10. ZANAFLEX [Concomitant]
     Active Substance: TIZANIDINE HYDROCHLORIDE
     Dosage: 1 TABLETS, 2X/DAY
     Route: 048
  11. DEBROX [Concomitant]
     Active Substance: CARBAMIDE PEROXIDE
     Dosage: 3 DROP, 2X/DAY; IN BOTH EARS
  12. KEPPRA [Concomitant]
     Active Substance: LEVETIRACETAM
     Dosage: 1 TABLETS, 2X/DAY
     Route: 048
  13. HYDRODIURIL [Concomitant]
     Active Substance: HYDROCHLOROTHIAZIDE
     Dosage: 1 TABLETS, 2X/DAY
     Route: 048
  14. KENALOG [Concomitant]
     Active Substance: TRIAMCINOLONE ACETONIDE
     Dosage: UNK, 2X/DAY
     Route: 061
  15. KEFLEX [Concomitant]
     Active Substance: CEPHALEXIN
     Dosage: 1 CAPSULES, 4X/DAY
     Route: 048
  16. SENNA-S [Concomitant]
     Active Substance: DOCUSATE SODIUM\SENNOSIDES
     Dosage: 1 TABLETS, 1X/DAY
     Route: 048
  17. VOLTAREN [Concomitant]
     Active Substance: DICLOFENAC SODIUM
     Dosage: UNK, 4X/DAY
     Route: 061
  18. ACULAR [Concomitant]
     Active Substance: KETOROLAC TROMETHAMINE
     Dosage: 1 DROP, 3X/DAY
  19. BACLOFEN. [Suspect]
     Active Substance: BACLOFEN
     Indication: PAIN
     Dosage: 1273.1 ?G, \DAY
     Route: 037
  20. DULCOLAX NOS [Concomitant]
     Active Substance: BISACODYL OR DOCUSATE SODIUM
     Dosage: 1 TABLETS, EVERY 48 HOURS
     Route: 048
  21. MAG-OX [Concomitant]
     Active Substance: MAGNESIUM OXIDE
     Dosage: 1 TABLETS, 2X/DAY
     Route: 048
  22. OCUFLOX [Concomitant]
     Active Substance: OFLOXACIN
     Dosage: 1 DROP, 3X/DAY

REACTIONS (16)
  - Insomnia [Unknown]
  - Muscle spasticity [Unknown]
  - Nephrocalcinosis [Unknown]
  - Mental status changes [Unknown]
  - Nephrolithiasis [Unknown]
  - Scoliosis [Unknown]
  - Dehydration [Unknown]
  - Device failure [Unknown]
  - Haematuria [Unknown]
  - Cataract [Recovered/Resolved]
  - Hiatus hernia [Unknown]
  - Hypertension [Unknown]
  - Pain [Unknown]
  - Pleural effusion [Unknown]
  - Oedema [Unknown]
  - Dyspnoea [Unknown]

NARRATIVE: CASE EVENT DATE: 20140603
